FAERS Safety Report 8471430-6 (Version None)
Quarter: 2012Q2

REPORT INFORMATION
  Report Type: 
  Country: None (occurrence: None)
  Receive Date: 20120627
  Receipt Date: 20120621
  Transmission Date: 20120825
  Serious: Yes (Hospitalization)
  Sender: FDA-Public Use
  Company Number: PHFR2011GB06241

PATIENT
  Sex: Male

DRUGS (1)
  1. CLOZARIL [Suspect]
     Indication: SCHIZOPHRENIA
     Route: 048
     Dates: start: 20040202

REACTIONS (4)
  - BLOOD CREATININE INCREASED [None]
  - MULTIPLE INJURIES [None]
  - RENAL FAILURE [None]
  - RENAL IMPAIRMENT [None]
